FAERS Safety Report 14280835 (Version 1)
Quarter: 2017Q4

REPORT INFORMATION
  Report Type: Spontaneous
  Country: JP (occurrence: JP)
  Receive Date: 20171213
  Receipt Date: 20171213
  Transmission Date: 20180321
  Serious: Yes (Life-Threatening, Hospitalization, Other)
  Sender: FDA-Public Use
  Company Number: JP-NOVOPROD-549848

PATIENT
  Age: 35 Year
  Sex: Male

DRUGS (1)
  1. NOVORAPID [Suspect]
     Active Substance: INSULIN ASPART
     Indication: PRODUCT USED FOR UNKNOWN INDICATION
     Dosage: 600 IU, QD
     Route: 058
     Dates: start: 20170611, end: 20170611

REACTIONS (4)
  - Hypokalaemia [Recovered/Resolved]
  - Intentional overdose [Unknown]
  - Hypoglycaemia [Recovered/Resolved]
  - Suicide attempt [Unknown]

NARRATIVE: CASE EVENT DATE: 20170611
